FAERS Safety Report 24037631 (Version 1)
Quarter: 2024Q3

REPORT INFORMATION
  Report Type: Spontaneous
  Country: US (occurrence: US)
  Receive Date: 20240702
  Receipt Date: 20240702
  Transmission Date: 20241017
  Serious: No
  Sender: SANOFI AVENTIS
  Company Number: US-SA-SAC20240625000951

PATIENT
  Age: 14 Year
  Sex: Male

DRUGS (4)
  1. ALPROLIX [Suspect]
     Active Substance: EFTRENONACOG ALFA
     Indication: Factor IX deficiency
     Dosage: 3000 UNITS (2700-3300) SLOW IV PUSH ONCE A WEEK AND AS NEEDED FOR BREAKTHROUGH BLEEDING, QW
     Route: 042
     Dates: start: 202211
  2. ALPROLIX [Suspect]
     Active Substance: EFTRENONACOG ALFA
     Indication: Factor IX deficiency
     Dosage: 3000 UNITS (2700-3300) SLOW IV PUSH ONCE A WEEK AND AS NEEDED FOR BREAKTHROUGH BLEEDING, QW
     Route: 042
     Dates: start: 202211
  3. ALPROLIX [Suspect]
     Active Substance: EFTRENONACOG ALFA
     Dosage: 3000 UNITS (2700-3300) SLOW IV PUSH ONCE A WEEK AND AS NEEDED FOR BREAKTHROUGH BLEEDING, PRN
     Route: 042
     Dates: start: 202211
  4. ALPROLIX [Suspect]
     Active Substance: EFTRENONACOG ALFA
     Dosage: 3000 UNITS (2700-3300) SLOW IV PUSH ONCE A WEEK AND AS NEEDED FOR BREAKTHROUGH BLEEDING, PRN
     Route: 042
     Dates: start: 202211

REACTIONS (1)
  - Haemorrhage [Recovered/Resolved]

NARRATIVE: CASE EVENT DATE: 20240501
